FAERS Safety Report 9900661 (Version 1)
Quarter: 2014Q1

REPORT INFORMATION
  Report Type: Report from Study
  Country: FR (occurrence: FR)
  Receive Date: 20140217
  Receipt Date: 20140217
  Transmission Date: 20141002
  Serious: Yes (Death, Hospitalization)
  Sender: FDA-Public Use
  Company Number: FR-ROCHE-1344129

PATIENT
  Age: 59 Year
  Sex: Female
  Weight: 78 kg

DRUGS (13)
  1. RITUXIMAB [Suspect]
     Indication: CHRONIC LYMPHOCYTIC LEUKAEMIA
     Dosage: AS PER PROTOCOL : CYCLE 1 ON DAY 1, FOLLOWED BY CYCLE 2-6 AT 500 MG/M2 ON DAY 1.
     Route: 041
     Dates: start: 20121114, end: 201304
  2. FLUDARABINE [Suspect]
     Indication: CHRONIC LYMPHOCYTIC LEUKAEMIA
     Dosage: AS PER PROTOCOL : CYCLE 1-6, DAYS 2-4.
     Route: 048
     Dates: start: 20121115, end: 201304
  3. CYCLOPHOSPHAMIDE [Suspect]
     Indication: CHRONIC LYMPHOCYTIC LEUKAEMIA
     Dosage: AS PER PROTOCOL : CYCLE 1-6, DAYS 2-4.
     Route: 048
     Dates: start: 20121115, end: 201304
  4. DEROXAT [Concomitant]
     Route: 065
  5. LYSANXIA [Concomitant]
     Route: 065
  6. NOCTAMIDE [Concomitant]
     Route: 065
  7. STRESAM [Concomitant]
     Route: 065
  8. LEPTICUR [Concomitant]
     Route: 065
  9. ZYPREXA [Concomitant]
     Route: 065
  10. SPECIAFOLDINE [Concomitant]
     Route: 065
  11. GRANOCYTE [Concomitant]
     Route: 065
  12. HYDROCORTISONE [Concomitant]
     Route: 065
  13. UVEDOSE [Concomitant]
     Route: 065

REACTIONS (1)
  - Encephalopathy [Fatal]
